FAERS Safety Report 8332745-5 (Version None)
Quarter: 2012Q1

REPORT INFORMATION
  Report Type: 
  Country: None (occurrence: None)
  Receive Date: 20120327
  Receipt Date: 20110217
  Transmission Date: 20120608
  Serious: Yes (Other)
  Sender: FDA-Public Use
  Company Number: PHHY2010US10323

PATIENT
  Age: 48 Year
  Sex: Female
  Weight: 61.2 kg

DRUGS (11)
  1. IRON (IRON) [Concomitant]
  2. PREVACID [Concomitant]
  3. DIOVAN [Concomitant]
  4. SINGULAIR [Concomitant]
  5. POTASSIUM CHLORIDE [Concomitant]
  6. GLEEVEC [Suspect]
     Indication: CHRONIC MYELOID LEUKAEMIA
     Dosage: 400 MG, DAILY, ORAL, 400 MG, DAILY, ORAL
     Route: 048
     Dates: start: 20100301
  7. GLEEVEC [Suspect]
     Indication: CHRONIC MYELOID LEUKAEMIA
     Dosage: 400 MG, DAILY, ORAL, 400 MG, DAILY, ORAL
     Route: 048
     Dates: start: 20100204, end: 20100301
  8. AMBIEN [Concomitant]
  9. ASCORBIC ACID [Concomitant]
  10. MOTRIN IB [Concomitant]
  11. NORVASC [Concomitant]

REACTIONS (14)
  - ANAEMIA [None]
  - DIARRHOEA [None]
  - EYE SWELLING [None]
  - ABDOMINAL PAIN [None]
  - ASTHENIA [None]
  - DYSPNOEA [None]
  - VOMITING [None]
  - HAEMOGLOBIN DECREASED [None]
  - SKIN DEPIGMENTATION [None]
  - FATIGUE [None]
  - PAIN [None]
  - EYE OEDEMA [None]
  - MUSCLE SPASMS [None]
  - MYALGIA [None]
